FAERS Safety Report 13128432 (Version 2)
Quarter: 2017Q1

REPORT INFORMATION
  Report Type: Report from Study
  Country: US (occurrence: US)
  Receive Date: 20170118
  Receipt Date: 20170202
  Transmission Date: 20170428
  Serious: Yes (Other)
  Sender: FDA-Public Use
  Company Number: US-SAOL THERAPEUTICS-2017SAO00095

PATIENT
  Age: 86 Year
  Sex: Female

DRUGS (13)
  1. BUPIVACAINE. [Suspect]
     Active Substance: BUPIVACAINE
     Dosage: 18.879 MG, \DAY
     Route: 037
     Dates: start: 20161020
  2. BACLOFEN. [Suspect]
     Active Substance: BACLOFEN
     Dosage: 14.39 ?G, \DAY
     Route: 037
     Dates: start: 20161227
  3. DILAUDID [Suspect]
     Active Substance: HYDROMORPHONE HYDROCHLORIDE
     Dosage: 24.03 ?G, \DAY
     Route: 037
     Dates: start: 20161227
  4. DILAUDID [Suspect]
     Active Substance: HYDROMORPHONE HYDROCHLORIDE
     Dosage: 1.573 MG, \DAY
     Route: 037
     Dates: start: 20161020
  5. DILAUDID [Suspect]
     Active Substance: HYDROMORPHONE HYDROCHLORIDE
     Dosage: 9.0 ?G, \DAY
     Route: 037
     Dates: start: 20161227
  6. COMPOUNDED BACLOFEN [Suspect]
     Active Substance: BACLOFEN
     Dosage: 251.72 ?G, \DAY
     Route: 037
     Dates: start: 20161020
  7. BUPIVACAINE. [Suspect]
     Active Substance: BUPIVACAINE
     Dosage: 21.455 MG, \DAY
     Route: 037
     Dates: start: 20161020
  8. BACLOFEN. [Suspect]
     Active Substance: BACLOFEN
     Dosage: 38.45 ?G, \DAY
     Route: 037
     Dates: start: 20161227
  9. BUPIVACAINE. [Suspect]
     Active Substance: BUPIVACAINE
     Dosage: 2.884 MG, \DAY
     Route: 037
     Dates: start: 20161227
  10. COMPOUNDED BACLOFEN [Suspect]
     Active Substance: BACLOFEN
     Dosage: 286.07 ?G, \DAY
     Route: 037
     Dates: start: 20161020
  11. BUPIVACAINE. [Suspect]
     Active Substance: BUPIVACAINE
     Dosage: 1.079 MG, \DAY
     Route: 037
     Dates: start: 20161227
  12. DILAUDID [Suspect]
     Active Substance: HYDROMORPHONE HYDROCHLORIDE
     Dosage: 0.2 MG, \DAY
     Route: 037
     Dates: start: 201612
  13. DILAUDID [Suspect]
     Active Substance: HYDROMORPHONE HYDROCHLORIDE
     Dosage: 1.787 MG, \DAY
     Route: 037
     Dates: start: 20161020

REACTIONS (4)
  - Sedation [Unknown]
  - Hypoxia [Unknown]
  - Device dislocation [Unknown]
  - Asthenia [Unknown]

NARRATIVE: CASE EVENT DATE: 20161227
